FAERS Safety Report 9237219 (Version 1)
Quarter: 2013Q2

REPORT INFORMATION
  Report Type: Spontaneous
  Country: US (occurrence: US)
  Receive Date: 20130417
  Receipt Date: 20130417
  Transmission Date: 20140414
  Serious: No
  Sender: FDA-Public Use
  Company Number: US-PFIZER INC-2013115023

PATIENT
  Age: 51 Year
  Sex: Male
  Weight: 98 kg

DRUGS (3)
  1. DEPO-TESTOSTERONE [Suspect]
     Indication: HYPOPITUITARISM
     Dosage: 0.7 ML, EVERY SEVEN DAYS
     Dates: start: 200411
  2. DEPO-TESTOSTERONE [Suspect]
     Indication: DIABETES INSIPIDUS
  3. VIAGRA [Concomitant]
     Indication: ERECTILE DYSFUNCTION
     Dosage: 100 MG, 2X/WEEK

REACTIONS (3)
  - Weight increased [Recovered/Resolved]
  - Blood pressure increased [Recovered/Resolved]
  - Feeling abnormal [Unknown]
